FAERS Safety Report 9495235 (Version 1)
Quarter: 2013Q3

REPORT INFORMATION
  Report Type: Spontaneous
  Country: PL (occurrence: None)
  Receive Date: 20130828
  Receipt Date: 20130828
  Transmission Date: 20140515
  Serious: Yes (Other)
  Sender: FDA-Public Use
  Company Number: FK201303526

PATIENT
  Age: 38 Year
  Sex: Male

DRUGS (4)
  1. METHYLPREDNISOLONE [Suspect]
     Indication: LICHEN MYXOEDEMATOSUS
     Dosage: 48MG, DAILY, ALTERNATING WITH 32MG DAILY
  2. ACITRETIN (ACITRETIN) [Suspect]
     Indication: LICHEN MYXOEDEMATOSUS
     Route: 048
  3. PREDNISOLONE (PREDNISOLONE) [Suspect]
     Indication: LICHEN MYXOEDEMATOSUS
     Route: 048
  4. HYDROCORTISONE [Suspect]
     Indication: LICHEN MYXOEDEMATOSUS
     Dosage: 200MG, 200MG X 2, INTRAVENOUS (NOT OTHERWISE SPECIFIED)
     Route: 042

REACTIONS (4)
  - Hypercholesterolaemia [None]
  - Hypertriglyceridaemia [None]
  - Hyperglycaemia [None]
  - Drug ineffective [None]
